FAERS Safety Report 9331471 (Version 1)
Quarter: 2013Q2

REPORT INFORMATION
  Report Type: Spontaneous
  Country: CA (occurrence: CA)
  Receive Date: 20130605
  Receipt Date: 20130605
  Transmission Date: 20140414
  Serious: Yes (Other)
  Sender: FDA-Public Use
  Company Number: CA-JNJFOC-20130521378

PATIENT
  Age: 13 Month
  Sex: Male

DRUGS (1)
  1. BENADRYL [Suspect]
     Indication: MULTIPLE ALLERGIES
     Route: 063

REACTIONS (2)
  - Gait disturbance [Not Recovered/Not Resolved]
  - Exposure during breast feeding [Unknown]
